FAERS Safety Report 25935052 (Version 4)
Quarter: 2025Q4

REPORT INFORMATION
  Report Type: Spontaneous
  Country: EU (occurrence: EU)
  Receive Date: 20251017
  Receipt Date: 20251222
  Transmission Date: 20260118
  Serious: Yes (Hospitalization)
  Sender: OTSUKA
  Company Number: EU-MMM-Otsuka-RH39I0ED

PATIENT
  Age: 47 Year
  Sex: Male

DRUGS (4)
  1. ABILIFY MAINTENA [Suspect]
     Active Substance: ARIPIPRAZOLE
     Indication: Schizophrenia
     Dosage: 960 MG, EVERY 2 MONTHS (1 INTERVAL UNIT: EVERY 2 MONTHS)
     Dates: start: 20250717, end: 20250911
  2. LANTUS [Concomitant]
     Active Substance: INSULIN GLARGINE
     Indication: Diabetes mellitus
     Dosage: UNK
     Route: 065
  3. METFORMIN [Concomitant]
     Active Substance: METFORMIN HYDROCHLORIDE
     Indication: Diabetes mellitus
     Dosage: UNK
     Route: 065
  4. OLANZAPINE [Concomitant]
     Active Substance: OLANZAPINE
     Indication: Product used for unknown indication
     Dosage: 5 MG, BID (IN THE MORNING AND THE EVENING)
     Route: 065
     Dates: start: 20251017

REACTIONS (10)
  - Chemical burn of skin [Recovering/Resolving]
  - Skin necrosis [Recovering/Resolving]
  - Skin infection [Recovering/Resolving]
  - Gait disturbance [Recovering/Resolving]
  - Hypersensitivity [Recovering/Resolving]
  - Injection site discolouration [Recovering/Resolving]
  - Scratch [Recovering/Resolving]
  - Injection site pain [Recovering/Resolving]
  - Pruritus [Recovering/Resolving]
  - Poor personal hygiene [Unknown]

NARRATIVE: CASE EVENT DATE: 20250911
